FAERS Safety Report 5142134-2 (Version None)
Quarter: 2006Q4

REPORT INFORMATION
  Report Type: 
  Country: None (occurrence: None)
  Receive Date: 20061102
  Receipt Date: 20060911
  Transmission Date: 20070319
  Serious: Yes (Death, Hospitalization)
  Sender: FDA-Public Use
  Company Number: GB-BAYER-200611114BNE

PATIENT
  Age: 63 Year
  Sex: Male
  Weight: 72 kg

DRUGS (11)
  1. SORAFENIB [Suspect]
     Indication: HEPATIC NEOPLASM MALIGNANT
     Route: 048
     Dates: start: 20060118, end: 20060909
  2. DOXORUBICIN HCL [Suspect]
     Indication: HEPATIC NEOPLASM MALIGNANT
     Route: 042
     Dates: start: 20060308, end: 20060308
  3. DOXORUBICIN HCL [Suspect]
     Route: 042
     Dates: start: 20060118, end: 20060118
  4. DOXORUBICIN HCL [Suspect]
     Route: 042
     Dates: start: 20060208, end: 20060208
  5. VITAMIN K [Concomitant]
     Route: 042
     Dates: start: 20060910
  6. FUROSEMIDE [Concomitant]
     Route: 042
     Dates: start: 20060910
  7. SALINE [Concomitant]
     Dates: start: 20060910
  8. PANTOPRAZOLE SODIUM [Concomitant]
     Route: 042
     Dates: start: 20060910
  9. TERLIPRESSIN [Concomitant]
     Route: 042
     Dates: start: 20060910
  10. PROPRANOLOL [Concomitant]
     Dates: start: 20060911
  11. GELOFUSIN [Concomitant]
     Route: 042
     Dates: start: 20060910

REACTIONS (18)
  - CELLULITIS [None]
  - CONTUSION [None]
  - ENCEPHALOPATHY [None]
  - FALL [None]
  - FATIGUE [None]
  - GAIT DISTURBANCE [None]
  - GASTROINTESTINAL HAEMORRHAGE [None]
  - GENERAL PHYSICAL HEALTH DETERIORATION [None]
  - HALLUCINATION [None]
  - HEPATIC FAILURE [None]
  - HYPOTENSION [None]
  - LETHARGY [None]
  - PERONEAL NERVE PALSY [None]
  - PORTAL HYPERTENSIVE GASTROPATHY [None]
  - RENAL IMPAIRMENT [None]
  - TACHYCARDIA [None]
  - URINARY INCONTINENCE [None]
  - URINARY RETENTION [None]
